APPROVED DRUG PRODUCT: PERCODAN
Active Ingredient: ASPIRIN; OXYCODONE HYDROCHLORIDE
Strength: 325MG;4.8355MG
Dosage Form/Route: TABLET;ORAL
Application: N007337 | Product #007 | TE Code: AA
Applicant: ENDO OPERATIONS LTD
Approved: Aug 5, 2005 | RLD: Yes | RS: Yes | Type: RX